FAERS Safety Report 6973712-3 (Version None)
Quarter: 2010Q3

REPORT INFORMATION
  Report Type: 
  Country: None (occurrence: None)
  Receive Date: 20100907
  Receipt Date: 20100907
  Transmission Date: 20110219
  Serious: Yes (Other)
  Sender: FDA-Public Use
  Company Number: AUR-APL-2010-02045

PATIENT
  Age: 21 Year
  Sex: Male

DRUGS (1)
  1. RISPERDONE [Suspect]
     Indication: SCHIZOPHRENIA
     Dosage: 6 MG - DAILY - PO
     Route: 048
     Dates: start: 20100310, end: 20100810

REACTIONS (4)
  - EXCESSIVE EYE BLINKING [None]
  - MUSCLE TWITCHING [None]
  - SELF ESTEEM DECREASED [None]
  - SOCIAL AVOIDANT BEHAVIOUR [None]
